FAERS Safety Report 9938274 (Version 2)
Quarter: 2014Q1

REPORT INFORMATION
  Report Type: Spontaneous
  Country: US (occurrence: US)
  Receive Date: 20140303
  Receipt Date: 20140303
  Transmission Date: 20141002
  Serious: No
  Sender: FDA-Public Use
  Company Number: US-ABBVIE-12P-163-0952464-00

PATIENT
  Age: 63 Year
  Sex: Male
  Weight: 78.09 kg

DRUGS (4)
  1. HUMIRA [Suspect]
     Indication: CROHN^S DISEASE
     Route: 058
     Dates: start: 2007
  2. PENTASA [Concomitant]
     Indication: CROHN^S DISEASE
  3. CHOLESTYRAMINE [Concomitant]
     Indication: CROHN^S DISEASE
  4. GLIPIZIDE [Concomitant]
     Indication: DIABETES MELLITUS

REACTIONS (11)
  - Device malfunction [Unknown]
  - Device malfunction [Unknown]
  - Incorrect dose administered [Unknown]
  - Incorrect dose administered [Unknown]
  - Injection site pain [Recovered/Resolved]
  - Injection site pain [Recovered/Resolved]
  - Diabetes mellitus [Not Recovered/Not Resolved]
  - Blood cholesterol increased [Unknown]
  - Blood triglycerides increased [Unknown]
  - Device malfunction [Not Recovered/Not Resolved]
  - Drug dose omission [Not Recovered/Not Resolved]
